FAERS Safety Report 21507938 (Version 1)
Quarter: 2022Q4

REPORT INFORMATION
  Report Type: Spontaneous
  Country: US (occurrence: None)
  Receive Date: 20221025
  Receipt Date: 20221025
  Transmission Date: 20230112
  Serious: No
  Sender: FDA-Public Use
  Company Number: None

PATIENT
  Age: 62 Year
  Sex: Female
  Weight: 57.6 kg

DRUGS (7)
  1. XALKORI [Suspect]
     Active Substance: CRIZOTINIB
     Indication: Lung neoplasm malignant
     Dosage: FREQUENCY : DAILY;?
     Route: 048
     Dates: start: 20221001
  2. CLARITIN [Concomitant]
     Active Substance: LORATADINE
     Dates: start: 20220923
  3. LEFLUNOMIDE [Concomitant]
     Active Substance: LEFLUNOMIDE
     Dates: start: 20220923
  4. VITAMINS [Concomitant]
     Active Substance: VITAMINS
     Dates: start: 20220923
  5. POTASSIUM CHLORIDE [Concomitant]
     Active Substance: POTASSIUM CHLORIDE
     Dates: start: 20220923
  6. TYLENOL [Concomitant]
     Active Substance: ACETAMINOPHEN
     Dates: start: 20220923
  7. VITAMIN D3 [Concomitant]
     Active Substance: CHOLECALCIFEROL
     Dates: start: 20220923

REACTIONS (2)
  - Neuropathy peripheral [None]
  - Oedema peripheral [None]

NARRATIVE: CASE EVENT DATE: 20221025
